FAERS Safety Report 4488074-3 (Version None)
Quarter: 2004Q4

REPORT INFORMATION
  Report Type: 
  Country: None (occurrence: None)
  Receive Date: 20041028
  Receipt Date: 20041004
  Transmission Date: 20050328
  Serious: Yes (Hospitalization)
  Sender: FDA-Public Use
  Company Number: IT-GLAXOSMITHKLINE-B0347712A

PATIENT
  Age: 58 Year
  Sex: Male

DRUGS (4)
  1. CLAVULIN [Suspect]
     Indication: PYREXIA
     Dosage: 1G TWICE PER DAY
     Route: 048
     Dates: start: 20040825, end: 20040828
  2. ASPIRIN [Concomitant]
     Dosage: 100MG UNKNOWN
     Route: 048
     Dates: start: 20010101, end: 20040929
  3. ATORVASTATIN CALCIUM [Concomitant]
     Dosage: 20MG UNKNOWN
     Route: 048
     Dates: start: 20010101, end: 20040929
  4. METOPROLOL [Concomitant]
     Dosage: 200MG UNKNOWN
     Route: 048
     Dates: start: 20010101, end: 20040929

REACTIONS (7)
  - ALANINE AMINOTRANSFERASE INCREASED [None]
  - ASPARTATE AMINOTRANSFERASE INCREASED [None]
  - BLOOD ALKALINE PHOSPHATASE INCREASED [None]
  - BLOOD BILIRUBIN INCREASED [None]
  - CHOLANGITIS [None]
  - GAMMA-GLUTAMYLTRANSFERASE INCREASED [None]
  - URTICARIA GENERALISED [None]
